FAERS Safety Report 6144705-3 (Version None)
Quarter: 2009Q2

REPORT INFORMATION
  Report Type: 
  Country: None (occurrence: None)
  Receive Date: 20090406
  Receipt Date: 20090326
  Transmission Date: 20091009
  Serious: Yes (Hospitalization)
  Sender: FDA-Public Use
  Company Number: B0568245A

PATIENT
  Sex: Female

DRUGS (2)
  1. LAMICTAL [Suspect]
     Indication: EPILEPSY
     Dosage: 400MG PER DAY
     Route: 048
     Dates: start: 19990101
  2. CILEST [Suspect]
     Indication: CONTRACEPTION
     Route: 048
     Dates: start: 20090202, end: 20090214

REACTIONS (5)
  - DRUG EXPOSURE DURING PREGNANCY [None]
  - DRUG INTERACTION [None]
  - DRUG LEVEL DECREASED [None]
  - PREGNANCY [None]
  - TEMPORAL LOBE EPILEPSY [None]
